FAERS Safety Report 11785794 (Version 3)
Quarter: 2016Q1

REPORT INFORMATION
  Report Type: Spontaneous
  Country: NL (occurrence: NL)
  Receive Date: 20151130
  Receipt Date: 20160114
  Transmission Date: 20160525
  Serious: Yes (Hospitalization)
  Sender: FDA-Public Use
  Company Number: NL-OTSUKA-2015_013719

PATIENT
  Age: 70 Year
  Sex: Male
  Weight: 107 kg

DRUGS (1)
  1. DACOGEN [Suspect]
     Active Substance: DECITABINE
     Indication: ACUTE MYELOID LEUKAEMIA
     Dosage: 47 MG, UNK
     Route: 042
     Dates: start: 20151007

REACTIONS (3)
  - Pyrexia [Recovered/Resolved]
  - Embolism [Recovered/Resolved]
  - Thrombophlebitis [Recovered/Resolved]

NARRATIVE: CASE EVENT DATE: 20151026
